FAERS Safety Report 5023285-X (Version None)
Quarter: 2006Q2

REPORT INFORMATION
  Report Type: 
  Country: None (occurrence: None)
  Receive Date: 20060612
  Receipt Date: 20060606
  Transmission Date: 20061013
  Serious: Yes (Other)
  Sender: FDA-Public Use
  Company Number: JP-JNJFOC-20060405468

PATIENT
  Age: 35 Year
  Sex: Female

DRUGS (3)
  1. TAVANIC [Suspect]
     Indication: BRONCHITIS
     Route: 048
     Dates: start: 20060407, end: 20060408
  2. CEFUHEXAL [Concomitant]
     Indication: BRONCHITIS
     Route: 048
     Dates: start: 20060412
  3. ACEMUC [Concomitant]
     Indication: BRONCHITIS
     Route: 048
     Dates: start: 20060506

REACTIONS (2)
  - ABORTION SPONTANEOUS [None]
  - DRUG EXPOSURE DURING PREGNANCY [None]
